FAERS Safety Report 23951344 (Version 1)
Quarter: 2024Q2

REPORT INFORMATION
  Report Type: Spontaneous
  Country: US (occurrence: None)
  Receive Date: 20240607
  Receipt Date: 20240607
  Transmission Date: 20240716
  Serious: No
  Sender: FDA-Public Use
  Company Number: None

PATIENT

DRUGS (1)
  1. AMOXICILLIN [Suspect]
     Active Substance: AMOXICILLIN

REACTIONS (8)
  - Product dispensing error [None]
  - Product dispensing error [None]
  - Product dispensing error [None]
  - Wrong dose [None]
  - Wrong product administered [None]
  - Abdominal pain upper [None]
  - Flatulence [None]
  - Headache [None]

NARRATIVE: CASE EVENT DATE: 20240418
